FAERS Safety Report 22184889 (Version 1)
Quarter: 2023Q2

REPORT INFORMATION
  Report Type: Spontaneous
  Country: CA (occurrence: CA)
  Receive Date: 20230407
  Receipt Date: 20230407
  Transmission Date: 20230722
  Serious: Yes (Hospitalization, Other)
  Sender: FDA-Public Use
  Company Number: CA-ALKEM LABORATORIES LIMITED-CA-ALKEM-2023-03257

PATIENT
  Sex: Female

DRUGS (6)
  1. COLCHICINE [Interacting]
     Active Substance: COLCHICINE
     Indication: Familial mediterranean fever
     Dosage: 0.3 MILLIGRAM, BID
     Route: 048
  2. COLCHICINE [Interacting]
     Active Substance: COLCHICINE
     Dosage: 0.3 MILLIGRAM, BID (RESUMED)
     Route: 048
  3. DOXORUBICIN [Interacting]
     Active Substance: DOXORUBICIN
     Indication: Hodgkin^s disease
     Dosage: 40 MILLIGRAM/SQ. METER (DAYS 1 AND 15)
     Route: 042
  4. ETOPOSIDE [Interacting]
     Active Substance: ETOPOSIDE
     Indication: Hodgkin^s disease
     Dosage: 125 MILLIGRAM/SQ. METER (DAYS 1-5)
     Route: 042
  5. PREDNISONE [Interacting]
     Active Substance: PREDNISONE
     Indication: Hodgkin^s disease
     Dosage: 60 MILLILITRE PER SQUARE METRE (DAYS 1-15)
     Route: 048
  6. VINCRISTINE [Interacting]
     Active Substance: VINCRISTINE
     Indication: Hodgkin^s disease
     Dosage: 1.5 MILLIGRAM/SQ. METER (DAYS 1, 8 AND 15)
     Route: 042

REACTIONS (6)
  - Drug interaction [Unknown]
  - Myelosuppression [Recovered/Resolved]
  - Sepsis [None]
  - Abdominal pain [Recovered/Resolved]
  - Diarrhoea [None]
  - Pyrexia [Recovered/Resolved]
